FAERS Safety Report 6442916-0 (Version None)
Quarter: 2009Q4

REPORT INFORMATION
  Report Type: 
  Country: None (occurrence: None)
  Receive Date: 20091113
  Receipt Date: 20091030
  Transmission Date: 20100525
  Serious: Yes (Other)
  Sender: FDA-Public Use
  Company Number: A0814195A

PATIENT
  Age: 60 Year
  Sex: Female

DRUGS (1)
  1. UREA PEROXIDE [Suspect]
     Dosage: AURAL

REACTIONS (5)
  - DEAFNESS TRANSITORY [None]
  - EAR PAIN [None]
  - HYPOACUSIS [None]
  - NECK PAIN [None]
  - OTORRHOEA [None]
